FAERS Safety Report 5931141-5 (Version None)
Quarter: 2008Q4

REPORT INFORMATION
  Report Type: 
  Country: None (occurrence: None)
  Receive Date: 20081027
  Receipt Date: 20081016
  Transmission Date: 20090506
  Serious: Yes (Hospitalization, Other)
  Sender: FDA-Public Use
  Company Number: PHMT2006CA01612

PATIENT
  Sex: Male

DRUGS (28)
  1. CLOZARIL [Suspect]
     Indication: SCHIZOPHRENIA
     Dosage: 300 MG/DAY
     Route: 048
     Dates: start: 20050615, end: 20080711
  2. CLOZARIL [Suspect]
     Dosage: 100 MG, BID
     Route: 048
  3. CLOZARIL [Suspect]
     Dosage: 50 MG, BID
  4. ZITHROMAX [Suspect]
  5. EPIVAL [Concomitant]
     Dosage: 825 MG/DAY
  6. EPIVAL [Concomitant]
     Dosage: 250 MG
  7. RIVOTRIL [Concomitant]
     Dosage: 1 MG, QHS
  8. FLOVENT [Concomitant]
  9. SEREVENT [Concomitant]
  10. SPIRIVA [Concomitant]
  11. VENTOLIN [Concomitant]
     Dosage: UNK, PRN
  12. LASIX [Concomitant]
     Dosage: 100 MG, BID
  13. HYDROCHLOROTHIAZIDE [Concomitant]
     Dosage: 12.5 MG, QOD
  14. K-DUR [Concomitant]
     Dosage: 20 MEQ, QD
  15. PANTOPRAZOLE SODIUM [Concomitant]
     Dosage: 40 UNK, BID
  16. FLOMAX [Concomitant]
     Dosage: 4 MG DAILY
  17. DITROPAN [Concomitant]
     Dosage: 5 MG, BID
  18. DOCUSATE [Concomitant]
  19. MILK OF MAGNESIA [Concomitant]
  20. ROBINUL [Concomitant]
     Dosage: UNK, PRN
  21. MORPHINE [Concomitant]
     Dosage: UNK, PRN
  22. VALIUM [Concomitant]
     Dosage: UNK, PRN
  23. LOXAPINE HCL [Concomitant]
     Dosage: UNK, PRN
  24. ATASOL [Concomitant]
     Dosage: 650 MG, QID
  25. PREDNISONE TAB [Concomitant]
     Dosage: 15 MG
  26. PREDNISONE TAB [Concomitant]
     Dosage: 10 MG
  27. COLACE [Concomitant]
  28. ATROVENT [Concomitant]

REACTIONS (13)
  - BICYTOPENIA [None]
  - CARDIAC FAILURE [None]
  - LEUKOPENIA [None]
  - LYMPHOMA [None]
  - MENTAL DISORDER [None]
  - NEUTROPENIA [None]
  - NEUTROPHIL COUNT DECREASED [None]
  - PALLIATIVE CARE [None]
  - PNEUMONIA [None]
  - PSYCHIATRIC DECOMPENSATION [None]
  - SUPERINFECTION [None]
  - THROMBOCYTOPENIA [None]
  - WHITE BLOOD CELL COUNT DECREASED [None]
